FAERS Safety Report 5749655-X (Version None)
Quarter: 2008Q2

REPORT INFORMATION
  Report Type: 
  Country: None (occurrence: None)
  Receive Date: 20080527
  Receipt Date: 20080514
  Transmission Date: 20081010
  Serious: Yes (Death)
  Sender: FDA-Public Use
  Company Number: US-MERCK-0805USA03914

PATIENT
  Age: 52 Year
  Sex: Male

DRUGS (5)
  1. ZOLINZA [Suspect]
     Indication: ACUTE MYELOID LEUKAEMIA
     Route: 048
  2. ZOLINZA [Suspect]
     Indication: CHROMOSOME ANALYSIS ABNORMAL
     Route: 048
  3. IDARUBICIN HYDROCHLORIDE [Concomitant]
     Indication: ACUTE MYELOID LEUKAEMIA
     Route: 065
  4. IDARUBICIN HYDROCHLORIDE [Concomitant]
     Indication: CHROMOSOME ANALYSIS ABNORMAL
     Route: 065
  5. SJG-136 [Concomitant]
     Route: 065

REACTIONS (5)
  - ATRIAL FIBRILLATION [None]
  - BACTERIAL SEPSIS [None]
  - CARDIAC FAILURE CONGESTIVE [None]
  - DEATH [None]
  - DRUG INEFFECTIVE [None]
